FAERS Safety Report 21488043 (Version 1)
Quarter: 2022Q4

REPORT INFORMATION
  Report Type: Report from Study
  Country: US (occurrence: US)
  Receive Date: 20221020
  Receipt Date: 20221020
  Transmission Date: 20230113
  Serious: Yes (Death, Hospitalization, Other)
  Sender: FDA-Public Use
  Company Number: US-BoehringerIngelheim-2021-BI-107288

PATIENT
  Age: 74 Year
  Sex: Female

DRUGS (3)
  1. OFEV [Suspect]
     Active Substance: NINTEDANIB
     Indication: Idiopathic pulmonary fibrosis
     Route: 048
     Dates: start: 20210519
  2. OFEV [Suspect]
     Active Substance: NINTEDANIB
  3. XELJANZ [Concomitant]
     Active Substance: TOFACITINIB CITRATE
     Indication: Product used for unknown indication

REACTIONS (10)
  - Death [Fatal]
  - Pulmonary hypertension [Unknown]
  - Oedema peripheral [Unknown]
  - Diarrhoea [Recovered/Resolved]
  - Back injury [Unknown]
  - Arthritis [Unknown]
  - Rhinorrhoea [Unknown]
  - Hypertension [Unknown]
  - Hypersomnia [Unknown]
  - Diarrhoea [Unknown]

NARRATIVE: CASE EVENT DATE: 20210519
